FAERS Safety Report 9697683 (Version 2)
Quarter: 2013Q4

REPORT INFORMATION
  Report Type: Spontaneous
  Country: FR (occurrence: None)
  Receive Date: 20131031
  Receipt Date: 20131108
  Transmission Date: 20140711
  Serious: Yes (Other)
  Sender: FDA-Public Use
  Company Number: 2013038576

PATIENT
  Sex: 0

DRUGS (1)
  1. PRIVIGEN [Suspect]

REACTIONS (1)
  - Cytomegalovirus infection [None]
